FAERS Safety Report 25418384 (Version 1)
Quarter: 2025Q2

REPORT INFORMATION
  Report Type: Spontaneous
  Country: CN (occurrence: CN)
  Receive Date: 20250610
  Receipt Date: 20250610
  Transmission Date: 20250716
  Serious: Yes (Disabling)
  Sender: COHERUS
  Company Number: CN-SHANGHAI JUNSHI BIOSCIENCES CO., LTD.-CN2025014368

PATIENT

DRUGS (21)
  1. TORIPALIMAB [Suspect]
     Active Substance: TORIPALIMAB
     Indication: Sebaceous carcinoma
     Route: 041
     Dates: start: 20241210, end: 20241210
  2. TORIPALIMAB [Suspect]
     Active Substance: TORIPALIMAB
     Route: 041
     Dates: start: 20250107, end: 20250107
  3. TORIPALIMAB [Suspect]
     Active Substance: TORIPALIMAB
     Route: 041
     Dates: start: 20250205, end: 20250205
  4. TORIPALIMAB [Suspect]
     Active Substance: TORIPALIMAB
     Route: 041
     Dates: start: 20250304, end: 20250304
  5. TORIPALIMAB [Suspect]
     Active Substance: TORIPALIMAB
     Route: 041
     Dates: start: 20250401, end: 20250401
  6. TORIPALIMAB [Suspect]
     Active Substance: TORIPALIMAB
     Route: 041
     Dates: start: 20250508, end: 20250508
  7. TORIPALIMAB [Suspect]
     Active Substance: TORIPALIMAB
     Route: 041
     Dates: start: 20250528, end: 20250528
  8. PACLITAXEL [Suspect]
     Active Substance: PACLITAXEL
     Indication: Sebaceous carcinoma
     Route: 041
     Dates: start: 20241210, end: 20241210
  9. PACLITAXEL [Suspect]
     Active Substance: PACLITAXEL
     Route: 041
     Dates: start: 20250107, end: 20250107
  10. PACLITAXEL [Suspect]
     Active Substance: PACLITAXEL
     Route: 041
     Dates: start: 20250205, end: 20250205
  11. PACLITAXEL [Suspect]
     Active Substance: PACLITAXEL
     Route: 041
     Dates: start: 20250304, end: 20250304
  12. PACLITAXEL [Suspect]
     Active Substance: PACLITAXEL
     Route: 041
     Dates: start: 20250401, end: 20250401
  13. PACLITAXEL [Suspect]
     Active Substance: PACLITAXEL
     Route: 041
     Dates: start: 20250508, end: 20250508
  14. CISPLATIN [Suspect]
     Active Substance: CISPLATIN
     Indication: Sebaceous carcinoma
     Dosage: 40 MG (D1-D3, QD)
     Route: 041
     Dates: start: 20241210, end: 20241212
  15. CISPLATIN [Suspect]
     Active Substance: CISPLATIN
     Dosage: 40 MG (D1-D3, QD)
     Route: 041
     Dates: start: 20250107, end: 20250109
  16. CISPLATIN [Suspect]
     Active Substance: CISPLATIN
     Dosage: 40 MG (D1-D3, QD)
     Route: 041
     Dates: start: 20250205, end: 20250207
  17. CISPLATIN [Suspect]
     Active Substance: CISPLATIN
     Dosage: 40 MG (D1-D3, QD)
     Route: 041
     Dates: start: 20250304, end: 20250306
  18. CISPLATIN [Suspect]
     Active Substance: CISPLATIN
     Dosage: 40 MG (D1-D3, QD)
     Route: 041
     Dates: start: 20250401, end: 20250403
  19. CISPLATIN [Suspect]
     Active Substance: CISPLATIN
     Dosage: 40 MG (D1-D3, QD)
     Route: 041
     Dates: start: 20250508, end: 20250510
  20. TRILACICLIB [Concomitant]
     Active Substance: TRILACICLIB
     Indication: Prophylaxis
     Dosage: 415 MG, QD
     Route: 041
     Dates: start: 20250508, end: 20250510
  21. PEGYLATED GRANULOCYTE COLONY-STIMULATING FACTOR [Concomitant]
     Active Substance: PEGYLATED GRANULOCYTE COLONY-STIMULATING FACTOR
     Indication: Prophylaxis
     Route: 058
     Dates: start: 20250512, end: 20250512

REACTIONS (2)
  - Myelosuppression [Unknown]
  - Rash [Recovering/Resolving]

NARRATIVE: CASE EVENT DATE: 20250507
